FAERS Safety Report 8135516-8 (Version None)
Quarter: 2012Q1

REPORT INFORMATION
  Report Type: 
  Country: None (occurrence: None)
  Receive Date: 20120214
  Receipt Date: 20111209
  Transmission Date: 20120608
  Serious: Yes (Other)
  Sender: FDA-Public Use
  Company Number: CA-JNJFOC-20120110800

PATIENT
  Sex: Female
  Weight: 111.59 kg

DRUGS (10)
  1. LYRICA [Concomitant]
     Route: 048
  2. CELEBREX [Concomitant]
     Route: 048
  3. REMICADE [Suspect]
     Route: 042
     Dates: start: 20070101
  4. DOVOBET [Concomitant]
     Route: 065
  5. METHOTREXATE [Concomitant]
     Route: 048
  6. REMICADE [Suspect]
     Indication: PSORIATIC ARTHROPATHY
     Dosage: PATIENT'S NEXT INFUSION WAS POSTPONED
     Route: 042
     Dates: start: 20111025
  7. REMICADE [Suspect]
     Indication: PSORIASIS
     Dosage: PATIENT'S NEXT INFUSION WAS POSTPONED
     Route: 042
     Dates: start: 20111025
  8. REMICADE [Suspect]
     Route: 042
     Dates: start: 20070101
  9. CELEXA [Concomitant]
     Route: 048
  10. FOLIC ACID [Concomitant]
     Route: 048

REACTIONS (5)
  - PRODUCTIVE COUGH [None]
  - EAR INFECTION [None]
  - URINARY TRACT INFECTION [None]
  - NASOPHARYNGITIS [None]
  - WHEEZING [None]
